FAERS Safety Report 4316079-1 (Version None)
Quarter: 2004Q1

REPORT INFORMATION
  Report Type: 
  Country: None (occurrence: None)
  Receive Date: 20040309
  Receipt Date: 20040223
  Transmission Date: 20041129
  Serious: Yes (Death, Hospitalization)
  Sender: FDA-Public Use
  Company Number: B0322671A

PATIENT
  Age: 78 Year
  Sex: Female

DRUGS (2)
  1. TRANYLCYPROMINE SULPHATE (FORMULATION UNKNOWN) (TRANYLCYPROMINE SULPHA [Suspect]
  2. TRAMADOL HCL [Concomitant]

REACTIONS (3)
  - DEPRESSION [None]
  - DISEASE RECURRENCE [None]
  - GENERAL PHYSICAL HEALTH DETERIORATION [None]
